FAERS Safety Report 9839855 (Version 1)
Quarter: 2014Q1

REPORT INFORMATION
  Report Type: Spontaneous
  Country: DE (occurrence: DE)
  Receive Date: 20140124
  Receipt Date: 20140124
  Transmission Date: 20141002
  Serious: Yes (Hospitalization)
  Sender: FDA-Public Use
  Company Number: GXKR2014DE000593

PATIENT
  Sex: 0

DRUGS (5)
  1. AMIODARONE [Suspect]
     Indication: ARRHYTHMIA
     Dosage: 200 MG, QD
     Route: 048
  2. PRADAXA [Suspect]
     Indication: ARRHYTHMIA
     Dosage: 1 DF, BID
  3. METOPROLOL [Concomitant]
     Indication: HYPERTENSION
     Dosage: 1X1/2
  4. RAMIPRIL [Concomitant]
     Indication: HYPERTENSION
     Dosage: 1 DF, BID
  5. MOXONIDIN [Concomitant]
     Indication: HYPERTENSION
     Dosage: 1 DF, BID

REACTIONS (2)
  - Atrial thrombosis [Unknown]
  - International normalised ratio increased [Unknown]
